FAERS Safety Report 7706104-X (Version None)
Quarter: 2011Q3

REPORT INFORMATION
  Report Type: 
  Country: None (occurrence: None)
  Receive Date: 20110824
  Receipt Date: 20110819
  Transmission Date: 20111222
  Serious: Yes (Death, Hospitalization, Other)
  Sender: FDA-Public Use
  Company Number: US-AMGEN-USASP2011041016

PATIENT
  Age: 72 Year
  Sex: Female

DRUGS (1)
  1. NPLATE [Suspect]
     Indication: IDIOPATHIC THROMBOCYTOPENIC PURPURA
     Dosage: 7.7 A?G/KG, UNK
     Dates: start: 20090115, end: 20090427

REACTIONS (5)
  - MYELODYSPLASTIC SYNDROME TRANSFORMATION [None]
  - DRUG INEFFECTIVE [None]
  - ACUTE MYELOID LEUKAEMIA [None]
  - MEGALOBLASTS INCREASED [None]
  - WHITE BLOOD CELL COUNT INCREASED [None]
